FAERS Safety Report 8484861 (Version 10)
Quarter: 2013Q4

REPORT INFORMATION
  Report Type: Report from Study
  Country: CA (occurrence: CA)
  Receive Date: 20120330
  Receipt Date: 20131217
  Transmission Date: 20140711
  Serious: Yes (Other)
  Sender: FDA-Public Use
  Company Number: CA-ROCHE-1051041

PATIENT
  Age: 51 Year
  Sex: Female
  Weight: 70 kg

DRUGS (6)
  1. ACTEMRA [Suspect]
     Indication: RHEUMATOID ARTHRITIS
     Route: 042
     Dates: start: 20110812, end: 20120214
  2. ACTEMRA [Suspect]
     Route: 042
  3. PREDNISONE [Concomitant]
  4. SYNTHROID [Concomitant]
  5. OMEPRAZOLE/OMEPRAZOLE MAGNESIUM [Concomitant]
  6. FOSAMAX [Concomitant]

REACTIONS (12)
  - Splenomegaly [Not Recovered/Not Resolved]
  - Dacryostenosis acquired [Recovering/Resolving]
  - Cataract [Not Recovered/Not Resolved]
  - Visual acuity reduced [Not Recovered/Not Resolved]
  - Cellulitis [Recovered/Resolved]
  - Eye infection [Unknown]
  - Pleurisy [Unknown]
  - Rash [Unknown]
  - Local swelling [Unknown]
  - Nasopharyngitis [Recovered/Resolved]
  - Hyperkeratosis [Recovering/Resolving]
  - Wound [Recovering/Resolving]
